FAERS Safety Report 16301982 (Version 1)
Quarter: 2019Q2

REPORT INFORMATION
  Report Type: Spontaneous
  Country: IN (occurrence: IN)
  Receive Date: 20190512
  Receipt Date: 20190512
  Transmission Date: 20190711
  Serious: Yes (Other)
  Sender: FDA-Public Use
  Company Number: PHHY2019IN103628

PATIENT
  Age: 60 Year
  Sex: Male

DRUGS (4)
  1. CARBAMAZEPINE. [Suspect]
     Active Substance: CARBAMAZEPINE
     Indication: POST HERPETIC NEURALGIA
     Dosage: UNK
     Route: 065
  2. ACYCLOVIR. [Concomitant]
     Active Substance: ACYCLOVIR
     Indication: PRODUCT USED FOR UNKNOWN INDICATION
     Dosage: UNK
     Route: 065
  3. IVERMECTIN. [Concomitant]
     Active Substance: IVERMECTIN
     Indication: STRONGYLOIDIASIS
     Dosage: 200 UG/KG, QD
     Route: 005
  4. ALBENDAZOLE. [Concomitant]
     Active Substance: ALBENDAZOLE
     Indication: STRONGYLOIDIASIS
     Dosage: 400 MG, BID
     Route: 065

REACTIONS (3)
  - Depressed level of consciousness [Recovering/Resolving]
  - Therapy non-responder [Unknown]
  - Product use in unapproved indication [Unknown]
